FAERS Safety Report 9234976 (Version 1)
Quarter: 2013Q2

REPORT INFORMATION
  Report Type: Spontaneous
  Country: GT (occurrence: GT)
  Receive Date: 20130416
  Receipt Date: 20130416
  Transmission Date: 20140414
  Serious: Yes (Hospitalization)
  Sender: FDA-Public Use
  Company Number: GT-ELI_LILLY_AND_COMPANY-GT201304001780

PATIENT
  Age: 40 Year
  Sex: Female

DRUGS (2)
  1. HUMULIN 30% REGULAR, 70% NPH [Suspect]
     Dosage: UNK, UNKNOWN
  2. HUMULIN 30% REGULAR, 70% NPH [Suspect]

REACTIONS (4)
  - Injection site ulcer [Unknown]
  - Injection site erythema [Unknown]
  - Rash [Unknown]
  - Suspected counterfeit product [Unknown]
